FAERS Safety Report 9522132 (Version 2)
Quarter: 2013Q3

REPORT INFORMATION
  Report Type: Spontaneous
  Country: JP (occurrence: JP)
  Receive Date: 20130913
  Receipt Date: 20130930
  Transmission Date: 20140515
  Serious: Yes (Hospitalization, Disabling, Other)
  Sender: FDA-Public Use
  Company Number: JP-PFIZER INC-2013261744

PATIENT
  Age: 34 Year
  Sex: Male
  Weight: 65.9 kg

DRUGS (10)
  1. SOLU-MEDROL [Suspect]
     Indication: NEPHROTIC SYNDROME
     Dosage: 1000 MG, 1X/DAY
     Route: 042
     Dates: start: 20090829, end: 20090831
  2. SOLU-MEDROL [Suspect]
     Indication: INFLAMMATION
     Dosage: 1000 MG, 1X/DAY
     Route: 042
     Dates: start: 20090916, end: 20090918
  3. PREDONINE [Suspect]
     Indication: NEPHROTIC SYNDROME
     Dosage: 60 MG, 3X/DAY
     Route: 048
     Dates: start: 20090827, end: 20111002
  4. PREDONINE [Suspect]
     Indication: INFLAMMATION
  5. ACTONEL [Concomitant]
     Indication: OSTEOPOROSIS
     Dosage: 17.5 MG, WEEKLY
     Route: 048
     Dates: start: 20090929, end: 20121127
  6. COMELIAN [Concomitant]
     Indication: HYPERCOAGULATION
     Dosage: 300 MG, 3X/DAY
     Route: 048
     Dates: start: 20090929, end: 20110821
  7. LIPITOR [Concomitant]
     Indication: HYPERLIPIDAEMIA
     Dosage: 10 MG, 1X/DAY
     Route: 048
     Dates: start: 20090929
  8. NEORAL [Concomitant]
     Indication: NEPHROTIC SYNDROME
     Dosage: 50 MG, 1X/DAY
     Route: 048
     Dates: start: 20090930
  9. BLOPRESS [Concomitant]
     Indication: PROTEINURIA
     Dosage: 8 MG, 1X/DAY
     Route: 048
     Dates: start: 20091203, end: 20100422
  10. BLOPRESS [Concomitant]
     Dosage: 4 MG, 1X/DAY
     Route: 048
     Dates: start: 20100423

REACTIONS (1)
  - Osteonecrosis [Recovered/Resolved with Sequelae]
